FAERS Safety Report 20923958 (Version 1)
Quarter: 2022Q2

REPORT INFORMATION
  Report Type: Spontaneous
  Country: US (occurrence: US)
  Receive Date: 20220607
  Receipt Date: 20220607
  Transmission Date: 20220721
  Serious: No
  Sender: FDA-Public Use
  Company Number: US-BAYER-2022A079777

PATIENT

DRUGS (1)
  1. ALEVE [Suspect]
     Active Substance: NAPROXEN SODIUM
     Indication: Asthma
     Route: 048

REACTIONS (3)
  - Erythema [Unknown]
  - Contraindicated product administered [Unknown]
  - Incorrect dose administered [Unknown]
